FAERS Safety Report 6498917-X (Version None)
Quarter: 2009Q4

REPORT INFORMATION
  Report Type: 
  Country: None (occurrence: None)
  Receive Date: 20091215
  Receipt Date: 20091211
  Transmission Date: 20100525
  Serious: Yes (Death)
  Sender: FDA-Public Use
  Company Number: US-JNJFOC-20091204015

PATIENT
  Age: 70 Year
  Sex: Female
  Weight: 87.54 kg

DRUGS (2)
  1. FENTANYL [Suspect]
     Indication: DRUG USE FOR UNKNOWN INDICATION
     Route: 065
  2. ATENOLOL [Concomitant]

REACTIONS (2)
  - RESPIRATORY FUME INHALATION DISORDER [None]
  - THERMAL BURN [None]
